FAERS Safety Report 7199344-2 (Version None)
Quarter: 2010Q4

REPORT INFORMATION
  Report Type: 
  Country: None (occurrence: None)
  Receive Date: 20101228
  Receipt Date: 20101223
  Transmission Date: 20110411
  Serious: Yes (Hospitalization)
  Sender: FDA-Public Use
  Company Number: PH-NAPPMUNDI-MAG-2008-0001357

PATIENT

DRUGS (2)
  1. OXYCODONE HYDROCHLORIDE [Suspect]
     Indication: PRODUCT USED FOR UNKNOWN INDICATION
     Dosage: 30 MG, DAILY
     Dates: start: 20080220, end: 20080225
  2. LAXOBERAL [Concomitant]
     Dosage: UNK
     Dates: start: 20080220, end: 20080227

REACTIONS (1)
  - DELIRIUM [None]
